FAERS Safety Report 12062759 (Version 1)
Quarter: 2016Q1

REPORT INFORMATION
  Report Type: Other
  Country: FR (occurrence: FR)
  Receive Date: 20160210
  Receipt Date: 20160210
  Transmission Date: 20160526
  Serious: Yes (Other)
  Sender: FDA-Public Use
  Company Number: FR-IGI LABORATORIES, INC.-1047623

PATIENT
  Age: 60 Year
  Sex: Male

DRUGS (3)
  1. LANSOPRAZOLE. [Suspect]
     Active Substance: LANSOPRAZOLE
  2. EZETIMIBE. [Suspect]
     Active Substance: EZETIMIBE
  3. ZANTAC [Suspect]
     Active Substance: RANITIDINE HYDROCHLORIDE
     Indication: PRODUCT USED FOR UNKNOWN INDICATION

REACTIONS (6)
  - Cutaneous lupus erythematosus [Unknown]
  - Skin erosion [Unknown]
  - Epidermal necrosis [Unknown]
  - Skin exfoliation [Unknown]
  - Blood disorder [Unknown]
  - Lymphocytic infiltration [Unknown]
